FAERS Safety Report 14077355 (Version 3)
Quarter: 2025Q1

REPORT INFORMATION
  Report Type: Report from Study
  Country: US (occurrence: US)
  Receive Date: 20171012
  Receipt Date: 20250324
  Transmission Date: 20250408
  Serious: Yes (Life-Threatening, Other)
  Sender: ROCHE
  Company Number: US-ROCHE-2005810

PATIENT
  Age: 60 Year
  Sex: Female
  Weight: 97.52 kg

DRUGS (5)
  1. XOLAIR [Suspect]
     Active Substance: OMALIZUMAB
     Indication: Asthma
     Dosage: THREE VIALS (150MG EACH) EVERY 10 DAYS ;ONGOING: NO
     Route: 058
     Dates: end: 201708
  2. XOLAIR [Suspect]
     Active Substance: OMALIZUMAB
     Indication: Anaphylactic reaction
     Dosage: EVERY TWO WEEKS ;ONGOING: YES
     Route: 058
     Dates: start: 201708
  3. XOLAIR [Suspect]
     Active Substance: OMALIZUMAB
     Route: 058
     Dates: start: 201708
  4. PREDNISONE [Suspect]
     Active Substance: PREDNISONE
     Indication: Product used for unknown indication
     Route: 065
  5. BREO ELLIPTA [Concomitant]
     Active Substance: FLUTICASONE FUROATE\VILANTEROL TRIFENATATE

REACTIONS (7)
  - Left ventricular failure [Recovered/Resolved]
  - Cushing^s syndrome [Unknown]
  - Pulmonary hypertension [Recovered/Resolved]
  - Weight increased [Not Recovered/Not Resolved]
  - Renal injury [Recovered/Resolved]
  - Asthma [Not Recovered/Not Resolved]
  - Off label use [Unknown]
